FAERS Safety Report 10120434 (Version 3)
Quarter: 2014Q2

REPORT INFORMATION
  Report Type: Spontaneous
  Country: US (occurrence: US)
  Receive Date: 20140425
  Receipt Date: 20140625
  Transmission Date: 20141212
  Serious: Yes (Other)
  Sender: FDA-Public Use
  Company Number: US-PFIZER INC-2014113890

PATIENT
  Age: 48 Year
  Sex: Female
  Weight: 76 kg

DRUGS (6)
  1. LIPITOR [Suspect]
     Indication: LOW DENSITY LIPOPROTEIN INCREASED
     Dosage: UNK
     Route: 048
     Dates: start: 1998, end: 2005
  2. LIPITOR [Suspect]
     Indication: CARDIOVASCULAR EVENT PROPHYLAXIS
  3. TYLENOL [Concomitant]
     Indication: HEADACHE
     Dosage: 1-2 TABLETS AS NEEDED
     Dates: start: 1989
  4. TYLENOL [Concomitant]
     Indication: BACK PAIN
  5. VITAMIN E [Concomitant]
     Indication: HAIR TEXTURE ABNORMAL
     Dosage: 1 DF, DAILY (1 TABLET DAILY)
     Dates: start: 1990
  6. VITAMIN E [Concomitant]
     Indication: NAIL DISORDER

REACTIONS (2)
  - Type 2 diabetes mellitus [Not Recovered/Not Resolved]
  - Cardiac disorder [Not Recovered/Not Resolved]
